FAERS Safety Report 7671248-8 (Version None)
Quarter: 2011Q3

REPORT INFORMATION
  Report Type: 
  Country: None (occurrence: None)
  Receive Date: 20110809
  Receipt Date: 20110726
  Transmission Date: 20111222
  Serious: Yes (Hospitalization)
  Sender: FDA-Public Use
  Company Number: US-ELI_LILLY_AND_COMPANY-US201102003227

PATIENT
  Age: 63 Year
  Sex: Male

DRUGS (3)
  1. FORTEO [Suspect]
     Dosage: 20 UG, QD
  2. FORTEO [Suspect]
     Indication: OSTEOPOROSIS
     Dosage: 20 UG, QD
     Dates: start: 20100901
  3. FORTEO [Suspect]
     Dosage: 20 UG, QD

REACTIONS (5)
  - CORONARY ARTERY DISEASE [None]
  - TYPE 2 DIABETES MELLITUS [None]
  - BONE FORMATION INCREASED [None]
  - GASTROINTESTINAL NECROSIS [None]
  - PAIN IN EXTREMITY [None]
